FAERS Safety Report 7853966-1 (Version None)
Quarter: 2011Q4

REPORT INFORMATION
  Report Type: 
  Country: None (occurrence: None)
  Receive Date: 20111026
  Receipt Date: 20111022
  Transmission Date: 20120403
  Serious: No
  Sender: FDA-Public Use
  Company Number: US-PFIZER INC-2011255905

PATIENT
  Sex: Male

DRUGS (1)
  1. IBUPROFEN (ADVIL) [Suspect]
     Dosage: 2400 MG, DAILY
     Dates: start: 20111001

REACTIONS (2)
  - ABDOMINAL PAIN LOWER [None]
  - OVERDOSE [None]
